FAERS Safety Report 24542677 (Version 1)
Quarter: 2024Q4

REPORT INFORMATION
  Report Type: Spontaneous
  Country: CA (occurrence: CA)
  Receive Date: 20241024
  Receipt Date: 20241024
  Transmission Date: 20250115
  Serious: Yes (Hospitalization)
  Sender: ROCHE
  Company Number: CA-002147023-NVSC2024CA205717

PATIENT
  Age: 53 Year
  Sex: Male

DRUGS (1)
  1. OMALIZUMAB [Suspect]
     Active Substance: OMALIZUMAB
     Indication: Asthma
     Dosage: 300 MG, Q2W
     Route: 065

REACTIONS (4)
  - Ear infection [Unknown]
  - Localised infection [Unknown]
  - Memory impairment [Unknown]
  - Pneumonia [Unknown]
